FAERS Safety Report 22692585 (Version 2)
Quarter: 2023Q4

REPORT INFORMATION
  Report Type: Report from Study
  Country: BE (occurrence: BE)
  Receive Date: 20230711
  Receipt Date: 20231009
  Transmission Date: 20240109
  Serious: Yes (Hospitalization)
  Sender: FDA-Public Use
  Company Number: BE-SA-SAC20230705001070

PATIENT
  Age: 51 Year
  Sex: Male
  Weight: 81 kg

DRUGS (5)
  1. ISATUXIMAB [Suspect]
     Active Substance: ISATUXIMAB
     Indication: Plasma cell myeloma
     Dosage: 820 MG, QW
     Route: 042
     Dates: start: 20230505, end: 20230505
  2. ISATUXIMAB [Suspect]
     Active Substance: ISATUXIMAB
     Dosage: 820 MG, QW
     Route: 041
  3. CARFILZOMIB [Suspect]
     Active Substance: CARFILZOMIB
     Indication: Plasma cell myeloma
     Dosage: 106.36 MG, QW
     Route: 042
     Dates: start: 20230505, end: 20230505
  4. LENALIDOMIDE [Suspect]
     Active Substance: LENALIDOMIDE
     Indication: Plasma cell myeloma
     Dosage: 15 MG (D21, D28)
     Route: 048
     Dates: start: 20230505, end: 20230505
  5. DEXAMETHASONE [Suspect]
     Active Substance: DEXAMETHASONE
     Indication: Plasma cell myeloma
     Dosage: 40 MG, QW
     Route: 048
     Dates: start: 20230505, end: 20230505

REACTIONS (1)
  - Abdominal pain upper [Recovered/Resolved]

NARRATIVE: CASE EVENT DATE: 20230702
